FAERS Safety Report 9313472 (Version 2)
Quarter: 2013Q2

REPORT INFORMATION
  Report Type: Spontaneous
  Country: GB (occurrence: GB)
  Receive Date: 20130528
  Receipt Date: 20130604
  Transmission Date: 20140414
  Serious: Yes (Other)
  Sender: FDA-Public Use
  Company Number: GB-GILEAD-2013-0074992

PATIENT
  Age: 49 Year
  Sex: Male

DRUGS (4)
  1. TRUVADA [Suspect]
     Indication: HIV INFECTION
     Dosage: 1 DF, QD
     Route: 048
     Dates: start: 20060517
  2. INTELENCE [Suspect]
     Indication: HIV INFECTION
     Dosage: 400 MG, QD
     Route: 048
     Dates: start: 20111104, end: 20121216
  3. TRAMADOL [Concomitant]
     Indication: PAIN IN EXTREMITY
     Dosage: 100 MG, QD
     Route: 048
     Dates: start: 2012
  4. MIRTAZAPINE [Concomitant]
     Indication: DEPRESSION
     Dosage: 15 MG, QD
     Route: 048
     Dates: start: 2011

REACTIONS (1)
  - Lipoatrophy [Not Recovered/Not Resolved]
